FAERS Safety Report 11187304 (Version 4)
Quarter: 2020Q3

REPORT INFORMATION
  Report Type: Spontaneous
  Country: US (occurrence: US)
  Receive Date: 20150615
  Receipt Date: 20200915
  Transmission Date: 20201102
  Serious: Yes (Death, Hospitalization)
  Sender: FDA-Public Use
  Company Number: US-JNJFOC-20150507945

PATIENT
  Age: 72 Year
  Sex: Male

DRUGS (18)
  1. INSULIN [Concomitant]
     Active Substance: INSULIN NOS
  2. XARELTO [Suspect]
     Active Substance: RIVAROXABAN
     Indication: CEREBROVASCULAR ACCIDENT PROPHYLAXIS
     Route: 048
     Dates: start: 20131114, end: 20140311
  3. PREDNISONE. [Concomitant]
     Active Substance: PREDNISONE
     Indication: ATRIAL FIBRILLATION
  4. IMDUR [Concomitant]
     Active Substance: ISOSORBIDE MONONITRATE
  5. ASPRIN [Suspect]
     Active Substance: ASPIRIN
     Indication: THROMBOSIS PROPHYLAXIS
     Route: 065
  6. CELLCEPT [Concomitant]
     Active Substance: MYCOPHENOLATE MOFETIL\MYCOPHENOLATE MOFETIL HYDROCHLORIDE
     Dates: start: 20120709
  7. FUROSEMIDE. [Concomitant]
     Active Substance: FUROSEMIDE
  8. HYDRALAZINE [Concomitant]
     Active Substance: HYDRALAZINE HYDROCHLORIDE
  9. VALSARTAN. [Concomitant]
     Active Substance: VALSARTAN
  10. XARELTO [Suspect]
     Active Substance: RIVAROXABAN
     Indication: ATRIAL FIBRILLATION
  11. ZOCOR [Concomitant]
     Active Substance: SIMVASTATIN
  12. NEURONTIN [Concomitant]
     Active Substance: GABAPENTIN
  13. SYMBICORT [Concomitant]
     Active Substance: BUDESONIDE\FORMOTEROL FUMARATE DIHYDRATE
     Route: 065
  14. XARELTO [Suspect]
     Active Substance: RIVAROXABAN
     Indication: EMBOLISM
  15. CLONIDINE. [Concomitant]
     Active Substance: CLONIDINE
  16. NEXIUM [Concomitant]
     Active Substance: ESOMEPRAZOLE MAGNESIUM
  17. PROGRAF [Concomitant]
     Active Substance: TACROLIMUS
     Dates: start: 20120709
  18. COREG [Concomitant]
     Active Substance: CARVEDILOL

REACTIONS (1)
  - Gastrointestinal haemorrhage [Recovering/Resolving]

NARRATIVE: CASE EVENT DATE: 20140311
